FAERS Safety Report 6014170-5 (Version None)
Quarter: 2008Q4

REPORT INFORMATION
  Report Type: 
  Country: None (occurrence: None)
  Receive Date: 20081219
  Receipt Date: 20080122
  Transmission Date: 20090506
  Serious: No
  Sender: FDA-Public Use
  Company Number: A0706169A

PATIENT
  Age: 73 Year
  Sex: Male

DRUGS (2)
  1. AVODART [Suspect]
     Route: 048
  2. VESICARE [Concomitant]
     Dosage: 10MG PER DAY
     Route: 048
     Dates: start: 20071001

REACTIONS (1)
  - DRUG INEFFECTIVE [None]
